FAERS Safety Report 12439101 (Version 2)
Quarter: 2016Q3

REPORT INFORMATION
  Report Type: Spontaneous
  Country: US (occurrence: US)
  Receive Date: 20160606
  Receipt Date: 20160701
  Transmission Date: 20161109
  Serious: No
  Sender: FDA-Public Use
  Company Number: US-PFIZER INC-2016259870

PATIENT
  Age: 66 Year
  Sex: Female

DRUGS (1)
  1. MENEST [Suspect]
     Active Substance: ESTROGENS, ESTERIFIED
     Indication: HORMONE REPLACEMENT THERAPY
     Dosage: 0.3 MG, UNK

REACTIONS (2)
  - Product use issue [Unknown]
  - Insomnia [Unknown]
